FAERS Safety Report 6614627-X (Version None)
Quarter: 2010Q1

REPORT INFORMATION
  Report Type: 
  Country: None (occurrence: None)
  Receive Date: 20100226
  Receipt Date: 20100221
  Transmission Date: 20100710
  Serious: Yes (Hospitalization)
  Sender: FDA-Public Use
  Company Number: 007488

PATIENT
  Age: 39 Year
  Sex: Female
  Weight: 57 kg

DRUGS (1)
  1. KEPPRA [Suspect]
     Indication: CONVULSION
     Dosage: (1000 MG  ORAL), (^INCREASED DOSAGE^)
     Route: 048
     Dates: start: 20070501

REACTIONS (2)
  - CONVULSION [None]
  - DRUG INEFFECTIVE [None]
